FAERS Safety Report 6840615-4 (Version None)
Quarter: 2010Q3

REPORT INFORMATION
  Report Type: 
  Country: None (occurrence: None)
  Receive Date: 20100714
  Receipt Date: 20071204
  Transmission Date: 20110219
  Serious: Yes (Other)
  Sender: FDA-Public Use
  Company Number: US-PFIZER INC-2007049194

PATIENT
  Sex: Female
  Weight: 62.727 kg

DRUGS (5)
  1. CHANTIX [Suspect]
     Indication: SMOKING CESSATION THERAPY
     Dates: start: 20070601, end: 20070701
  2. PAXIL [Concomitant]
     Indication: DEPRESSION
  3. XANAX [Concomitant]
     Indication: DEPRESSION
  4. TRICOR [Concomitant]
  5. PROTONIX [Concomitant]

REACTIONS (5)
  - DEPRESSED MOOD [None]
  - FEELING ABNORMAL [None]
  - FRUSTRATION [None]
  - HEAD DISCOMFORT [None]
  - SUICIDAL IDEATION [None]
